FAERS Safety Report 10427654 (Version 2)
Quarter: 2014Q4

REPORT INFORMATION
  Report Type: Spontaneous
  Country: JP (occurrence: JP)
  Receive Date: 20140903
  Receipt Date: 20141023
  Transmission Date: 20150528
  Serious: Yes (Other)
  Sender: FDA-Public Use
  Company Number: PHHY2012JP135459

PATIENT
  Age: 80 Year
  Sex: Female

DRUGS (1)
  1. EXJADE [Suspect]
     Active Substance: DEFERASIROX
     Indication: APLASTIC ANAEMIA
     Dosage: 500 MG, DAILY
     Route: 048
     Dates: start: 20120701

REACTIONS (4)
  - Pneumoconiosis [Not Recovered/Not Resolved]
  - Renal failure [Not Recovered/Not Resolved]
  - Reticulocytosis [Unknown]
  - Nephrogenic anaemia [Not Recovered/Not Resolved]

NARRATIVE: CASE EVENT DATE: 20121102
